FAERS Safety Report 6203487-7 (Version None)
Quarter: 2009Q2

REPORT INFORMATION
  Report Type: 
  Country: None (occurrence: None)
  Receive Date: 20090501
  Receipt Date: 20080414
  Transmission Date: 20091009
  Serious: Yes (Other)
  Sender: FDA-Public Use
  Company Number: 2008BH003826

PATIENT
  Sex: Male

DRUGS (1)
  1. HEMOFIL M [Suspect]
     Indication: HAEMOPHILIA
     Dosage: 12000 IU; EVERY WEEK

REACTIONS (1)
  - FACTOR VIII INHIBITION [None]
